FAERS Safety Report 21688392 (Version 2)
Quarter: 2022Q4

REPORT INFORMATION
  Report Type: Spontaneous
  Country: US (occurrence: US)
  Receive Date: 20221206
  Receipt Date: 20221213
  Transmission Date: 20230112
  Serious: No
  Sender: FDA-Public Use
  Company Number: US-SA-SAC20221205000215

PATIENT
  Age: 48 Year
  Sex: Male

DRUGS (1)
  1. DUPIXENT [Suspect]
     Active Substance: DUPILUMAB
     Indication: Nasal polyps
     Dosage: 300 MG, QOW
     Route: 058
     Dates: start: 202211

REACTIONS (3)
  - Vision blurred [Not Recovered/Not Resolved]
  - Corrective lens user [Unknown]
  - Eye pruritus [Unknown]

NARRATIVE: CASE EVENT DATE: 20221101
